APPROVED DRUG PRODUCT: ATACAND HCT
Active Ingredient: CANDESARTAN CILEXETIL; HYDROCHLOROTHIAZIDE
Strength: 32MG;25MG
Dosage Form/Route: TABLET;ORAL
Application: N021093 | Product #003 | TE Code: AB
Applicant: ANI PHARMACEUTICALS INC
Approved: May 16, 2008 | RLD: Yes | RS: Yes | Type: RX